FAERS Safety Report 17538176 (Version 1)
Quarter: 2020Q1

REPORT INFORMATION
  Report Type: Spontaneous
  Country: DE (occurrence: DE)
  Receive Date: 20200313
  Receipt Date: 20200313
  Transmission Date: 20200409
  Serious: Yes (Other)
  Sender: FDA-Public Use
  Company Number: DE-PFIZER INC-2020109521

PATIENT

DRUGS (1)
  1. CYTOTEC [Suspect]
     Active Substance: MISOPROSTOL
     Indication: LABOUR INDUCTION
     Dosage: FIRST DOSE 0.5 TABLET + 2ND DOSE: 2X 0.5 DF
     Route: 064
     Dates: start: 20130319, end: 20130319

REACTIONS (3)
  - Foetal distress syndrome [Unknown]
  - Foetal heart rate decreased [Unknown]
  - Foetal exposure during delivery [Unknown]

NARRATIVE: CASE EVENT DATE: 20130319
